FAERS Safety Report 16090014 (Version 1)
Quarter: 2019Q1

REPORT INFORMATION
  Report Type: Spontaneous
  Country: RU (occurrence: RU)
  Receive Date: 20190319
  Receipt Date: 20190319
  Transmission Date: 20190418
  Serious: Yes (Other)
  Sender: FDA-Public Use
  Company Number: RU-MARINA BIOTECH, INC.-2019MARINA000555

PATIENT

DRUGS (6)
  1. DEPAKINE CHRONO [Concomitant]
     Active Substance: VALPROATE SODIUM
     Indication: POST STROKE EPILEPSY
     Dosage: 500 MG, BID
     Dates: start: 201808
  2. PRESTANCE [Suspect]
     Active Substance: AMLODIPINE BESYLATE\PERINDOPRIL ARGININE
     Dosage: 0.25 (10MG/10MG) TABLET, QD
     Route: 048
     Dates: start: 20190301
  3. PRESTANCE [Suspect]
     Active Substance: AMLODIPINE BESYLATE\PERINDOPRIL ARGININE
     Indication: HYPERTENSION
     Dosage: 0.25-0.5 (5MG/5MG) TABLET, QD
     Route: 048
     Dates: start: 201810, end: 20190224
  4. PRESTANCE [Suspect]
     Active Substance: AMLODIPINE BESYLATE\PERINDOPRIL ARGININE
     Indication: HYPERTENSION
     Dosage: 0.5 (10MG/10MG) TABLET, QD
     Route: 048
     Dates: start: 20190301, end: 20190301
  5. PRESTANCE [Suspect]
     Active Substance: AMLODIPINE BESYLATE\PERINDOPRIL ARGININE
     Dosage: 0.5 (5MG/5MG) TABLET, QD
     Route: 048
     Dates: start: 20190225, end: 20190225
  6. PRESTANCE [Suspect]
     Active Substance: AMLODIPINE BESYLATE\PERINDOPRIL ARGININE
     Dosage: 1 (5MG/5MG) TABLET, QD
     Route: 048
     Dates: start: 20190226, end: 20190228

REACTIONS (4)
  - Underdose [Recovered/Resolved]
  - Suspected counterfeit product [Recovered/Resolved]
  - Product use issue [Recovered/Resolved]
  - Blood pressure increased [Recovered/Resolved]

NARRATIVE: CASE EVENT DATE: 201810
